FAERS Safety Report 10059881 (Version 1)
Quarter: 2014Q2

REPORT INFORMATION
  Report Type: Spontaneous
  Country: US (occurrence: US)
  Receive Date: 20140404
  Receipt Date: 20140404
  Transmission Date: 20141212
  Serious: Yes (Other)
  Sender: FDA-Public Use
  Company Number: US-GLAXOSMITHKLINE-A1067082A

PATIENT
  Sex: Female

DRUGS (9)
  1. ADVAIR [Suspect]
     Indication: ASTHMA
     Dosage: 1PUFF PER DAY
     Route: 055
     Dates: start: 1994
  2. COUMADIN [Concomitant]
  3. CODEINE [Concomitant]
  4. FUROSEMIDE [Concomitant]
  5. LEVOXYL [Concomitant]
  6. ALLOPURINOL [Concomitant]
  7. BABY ASPIRIN [Concomitant]
  8. LOSARTAN [Concomitant]
  9. ZYRTEC [Concomitant]

REACTIONS (12)
  - Eye disorder [Not Recovered/Not Resolved]
  - Lacrimation increased [Unknown]
  - Abnormal sensation in eye [Unknown]
  - VIIth nerve paralysis [Unknown]
  - Cataract [Unknown]
  - Visual impairment [Unknown]
  - Ear pain [Unknown]
  - Deafness unilateral [Unknown]
  - Deafness [Unknown]
  - Tinnitus [Unknown]
  - Rhinorrhoea [Unknown]
  - Sleep disorder [Unknown]
